FAERS Safety Report 17906698 (Version 2)
Quarter: 2020Q3

REPORT INFORMATION
  Report Type: Report from Study
  Country: RU (occurrence: RU)
  Receive Date: 20200617
  Receipt Date: 20200714
  Transmission Date: 20201103
  Serious: Yes (Death, Other)
  Sender: FDA-Public Use
  Company Number: NVSC2020RU167730

PATIENT
  Age: 64 Year
  Sex: Female

DRUGS (1)
  1. ILARIS [Suspect]
     Active Substance: CANAKINUMAB
     Indication: COVID-19
     Dosage: 150 MG
     Route: 065

REACTIONS (6)
  - Pneumonia [Unknown]
  - Immunodeficiency [Unknown]
  - Acute respiratory distress syndrome [Unknown]
  - Plasma cell myeloma [Unknown]
  - Lymphoma [Unknown]
  - COVID-19 [Fatal]

NARRATIVE: CASE EVENT DATE: 20200423
